FAERS Safety Report 10645687 (Version 1)
Quarter: 2014Q4

REPORT INFORMATION
  Report Type: Spontaneous
  Country: FR (occurrence: FR)
  Receive Date: 20141211
  Receipt Date: 20141211
  Transmission Date: 20150529
  Serious: Yes (Death, Hospitalization)
  Sender: FDA-Public Use
  Company Number: FR-SA-2014SA170201

PATIENT
  Age: 58 Year
  Sex: Male

DRUGS (11)
  1. ZOLPIDEM [Suspect]
     Active Substance: ZOLPIDEM\ZOLPIDEM TARTRATE
     Route: 048
     Dates: end: 20141017
  2. SERESTA [Suspect]
     Active Substance: OXAZEPAM
     Dosage: 50 MG TABLET
     Route: 048
     Dates: start: 20141017, end: 20141017
  3. SOLIAN [Suspect]
     Active Substance: AMISULPRIDE
     Route: 048
     Dates: end: 20141017
  4. SUFENTA [Suspect]
     Active Substance: SUFENTANIL CITRATE
     Route: 042
     Dates: end: 20141017
  5. SERESTA [Suspect]
     Active Substance: OXAZEPAM
     Dosage: 20 MG TABLET
     Route: 048
     Dates: start: 20141016, end: 20141017
  6. VALIUM [Suspect]
     Active Substance: DIAZEPAM
     Dosage: 1 VIAL
     Route: 042
     Dates: start: 20141017, end: 20141017
  7. TIAPRIDAL [Suspect]
     Active Substance: TIAPRIDE HYDROCHLORIDE
     Route: 048
     Dates: end: 20141017
  8. NAROPEINE [Suspect]
     Active Substance: ROPIVACAINE HYDROCHLORIDE
     Route: 042
     Dates: start: 20141016, end: 20141017
  9. ZAMUDOL [Suspect]
     Active Substance: TRAMADOL HYDROCHLORIDE
     Route: 048
     Dates: start: 20141016, end: 20141017
  10. PARKINANE [Suspect]
     Active Substance: TRIHEXYPHENIDYL HYDROCHLORIDE
     Route: 048
     Dates: end: 20141017
  11. PRINIVIL [Concomitant]
     Active Substance: LISINOPRIL

REACTIONS (1)
  - Cardio-respiratory arrest [Fatal]

NARRATIVE: CASE EVENT DATE: 20141017
